FAERS Safety Report 4325422-9 (Version None)
Quarter: 2004Q1

REPORT INFORMATION
  Report Type: 
  Country: None (occurrence: None)
  Receive Date: 20040324
  Receipt Date: 20031119
  Transmission Date: 20041129
  Serious: Yes (Hospitalization)
  Sender: FDA-Public Use
  Company Number: 186267

PATIENT
  Sex: Female
  Weight: 69.8539 kg

DRUGS (6)
  1. AVONEX [Suspect]
     Indication: MULTIPLE SCLEROSIS
     Dosage: 30 MCG QW IM
     Dates: start: 19961101, end: 20030101
  2. AVONEX [Suspect]
     Indication: MULTIPLE SCLEROSIS
     Dosage: 30 MCG QW IM
     Dates: start: 20030101
  3. PLAQUENIL [Concomitant]
  4. BACLOFEN [Concomitant]
  5. ZANTAC [Concomitant]
  6. PREMARIN [Concomitant]

REACTIONS (4)
  - CONDITION AGGRAVATED [None]
  - INFLUENZA LIKE ILLNESS [None]
  - IRON DEFICIENCY ANAEMIA [None]
  - MULTIPLE SCLEROSIS [None]
